FAERS Safety Report 10535128 (Version 2)
Quarter: 2014Q4

REPORT INFORMATION
  Report Type: Spontaneous
  Country: AR (occurrence: AR)
  Receive Date: 20141022
  Receipt Date: 20141106
  Transmission Date: 20150529
  Serious: Yes (Other)
  Sender: FDA-Public Use
  Company Number: AR-GLAXOSMITHKLINE-AR2014GSK005113

PATIENT
  Age: 80 Year
  Sex: Male

DRUGS (2)
  1. AVODART [Suspect]
     Active Substance: DUTASTERIDE
  2. TAMSULOSINE [Concomitant]
     Active Substance: TAMSULOSIN HYDROCHLORIDE

REACTIONS (1)
  - Urinary retention [Unknown]
